FAERS Safety Report 23913632 (Version 1)
Quarter: 2024Q2

REPORT INFORMATION
  Report Type: Spontaneous
  Country: PT (occurrence: PT)
  Receive Date: 20240529
  Receipt Date: 20240529
  Transmission Date: 20240716
  Serious: Yes (Other)
  Sender: FDA-Public Use
  Company Number: PT-BAXTER-2024BAX018784

PATIENT

DRUGS (1)
  1. LIDOCAINE [Suspect]
     Active Substance: LIDOCAINE
     Indication: Foetal exposure during pregnancy
     Dosage: UNK
     Route: 064

REACTIONS (2)
  - Foetal distress syndrome [Unknown]
  - Foetal exposure during pregnancy [Unknown]
